FAERS Safety Report 9307920 (Version 1)
Quarter: 2013Q2

REPORT INFORMATION
  Report Type: Spontaneous
  Country: US (occurrence: US)
  Receive Date: 20130524
  Receipt Date: 20130524
  Transmission Date: 20140414
  Serious: Yes (Hospitalization)
  Sender: FDA-Public Use
  Company Number: US-AMGEN-USASP2013036494

PATIENT
  Age: 66 Year
  Sex: Male

DRUGS (8)
  1. NEULASTA [Suspect]
     Indication: PLASMA CELL MYELOMA
     Dosage: 6 MG, ONCE AFTER CHEMOTHERAPY
     Route: 058
     Dates: start: 20120925
  2. POMALIDOMIDE [Suspect]
     Indication: PLASMA CELL MYELOMA
     Dosage: 2 MG DAILY, 21 IN 21 DAYS
     Route: 048
     Dates: start: 20130409
  3. NEUPOGEN [Concomitant]
     Indication: NEUTROPENIA
     Dosage: 300 MUG, 7 IN 7 D
     Route: 058
     Dates: start: 20130125
  4. DEXAMETHASONE [Concomitant]
     Indication: PRODUCT USED FOR UNKNOWN INDICATION
     Dosage: UNK
     Route: 065
  5. CLINDAMYCIN [Concomitant]
     Indication: PRODUCT USED FOR UNKNOWN INDICATION
     Dosage: UNK
     Route: 065
  6. TAMSULOSIN [Concomitant]
     Indication: PRODUCT USED FOR UNKNOWN INDICATION
     Dosage: UNK
     Route: 065
  7. LANSOPRAZOLE [Concomitant]
     Indication: PRODUCT USED FOR UNKNOWN INDICATION
     Dosage: UNK
     Route: 065
  8. AMITRIPTYLINE [Concomitant]
     Indication: PRODUCT USED FOR UNKNOWN INDICATION
     Dosage: UNK
     Route: 065

REACTIONS (1)
  - Epistaxis [Unknown]
